FAERS Safety Report 12074644 (Version 1)
Quarter: 2016Q1

REPORT INFORMATION
  Report Type: Report from Study
  Country: US (occurrence: US)
  Receive Date: 20160212
  Receipt Date: 20160212
  Transmission Date: 20160526
  Serious: Yes (Other)
  Sender: FDA-Public Use
  Company Number: US-ABBVIE-16K-163-1555734-00

PATIENT
  Age: 50 Year
  Sex: Male
  Weight: 84.3 kg

DRUGS (3)
  1. MERCAPTOPURINE. [Concomitant]
     Active Substance: MERCAPTOPURINE
     Indication: COLITIS ULCERATIVE
  2. HUMIRA [Suspect]
     Active Substance: ADALIMUMAB
     Indication: COLITIS ULCERATIVE
     Route: 058
     Dates: start: 201511
  3. LIALDA [Concomitant]
     Active Substance: MESALAMINE
     Indication: COLITIS ULCERATIVE

REACTIONS (4)
  - Intestinal mass [Unknown]
  - Abdominal pain upper [Recovering/Resolving]
  - Hepatic steatosis [Unknown]
  - Gallbladder polyp [Recovered/Resolved]

NARRATIVE: CASE EVENT DATE: 2015
